FAERS Safety Report 7360302-6 (Version None)
Quarter: 2011Q1

REPORT INFORMATION
  Report Type: 
  Country: None (occurrence: None)
  Receive Date: 20110318
  Receipt Date: 20110309
  Transmission Date: 20110831
  Serious: No
  Sender: FDA-Public Use
  Company Number: JP-JNJFOC-20110304700

PATIENT
  Sex: Female

DRUGS (3)
  1. DUROTEP MT [Suspect]
     Indication: CANCER PAIN
     Route: 062
  2. TERNELIN [Concomitant]
     Route: 048
  3. VOLTAREN [Concomitant]
     Route: 048

REACTIONS (1)
  - DRUG PRESCRIBING ERROR [None]
